FAERS Safety Report 14444912 (Version 1)
Quarter: 2018Q1

REPORT INFORMATION
  Report Type: Spontaneous
  Country: US (occurrence: US)
  Receive Date: 20180125
  Receipt Date: 20180125
  Transmission Date: 20180509
  Serious: Yes (Life-Threatening, Hospitalization, Disabling, Other)
  Sender: FDA-Public Use
  Company Number: None

PATIENT
  Sex: Male
  Weight: 74.25 kg

DRUGS (1)
  1. LARIAM [Suspect]
     Active Substance: MEFLOQUINE HYDROCHLORIDE
     Indication: MALARIA PROPHYLAXIS
     Dosage: ?          QUANTITY:1 TABLET(S);OTHER FREQUENCY:WEEKLY;?
     Route: 048
     Dates: start: 20021129, end: 20030512

REACTIONS (4)
  - Vestibular disorder [None]
  - Vertigo positional [None]
  - Visual impairment [None]
  - Disease recurrence [None]

NARRATIVE: CASE EVENT DATE: 20021129
